FAERS Safety Report 15003148 (Version 2)
Quarter: 2018Q2

REPORT INFORMATION
  Report Type: Report from Study
  Country: CA (occurrence: CA)
  Receive Date: 20180613
  Receipt Date: 20180627
  Transmission Date: 20180711
  Serious: Yes (Other)
  Sender: FDA-Public Use
  Company Number: CA-HLSUS-2018-CA-000908

PATIENT
  Age: 58 Year
  Sex: Female

DRUGS (1)
  1. CLOZARIL [Suspect]
     Active Substance: CLOZAPINE
     Route: 048
     Dates: start: 20121029

REACTIONS (12)
  - Nasopharyngitis [Unknown]
  - Hallucination, auditory [Unknown]
  - Dysphonia [Unknown]
  - Hallucination, visual [Unknown]
  - Dizziness [Unknown]
  - Vomiting [Unknown]
  - Delirium [Unknown]
  - Somnolence [Unknown]
  - Salivary hypersecretion [Unknown]
  - Nausea [Unknown]
  - Chest pain [Unknown]
  - Dysphagia [Unknown]

NARRATIVE: CASE EVENT DATE: 20180519
